FAERS Safety Report 11746847 (Version 3)
Quarter: 2016Q1

REPORT INFORMATION
  Report Type: Spontaneous
  Country: US (occurrence: US)
  Receive Date: 20151117
  Receipt Date: 20160226
  Transmission Date: 20160525
  Serious: Yes (Other)
  Sender: FDA-Public Use
  Company Number: US-PFIZER INC-2015377673

PATIENT
  Age: 82 Year
  Sex: Female

DRUGS (43)
  1. METHYLPREDNISOLONE SOD SUCC [Concomitant]
     Dosage: UNK
  2. AMARYL [Concomitant]
     Active Substance: GLIMEPIRIDE
     Dosage: 8 MG, DAILY
     Route: 048
     Dates: start: 20160204
  3. SYNTHROID [Concomitant]
     Active Substance: LEVOTHYROXINE SODIUM
     Dosage: 75 UG, DAILY
     Route: 048
     Dates: start: 20160204
  4. GLUCOSAMINE HCL [Concomitant]
     Active Substance: GLUCOSAMINE
     Dosage: UNK (PO SOLID)
     Route: 048
  5. PROAIR HFA [Concomitant]
     Active Substance: ALBUTEROL SULFATE
     Indication: DYSPNOEA
  6. VITAMIN B12 [Concomitant]
     Active Substance: CYANOCOBALAMIN
     Dosage: 500 UG, UNK (TAKE 1 PO AS DIRECTED)
     Route: 048
  7. ZYRTEC [Concomitant]
     Active Substance: CETIRIZINE HYDROCHLORIDE
     Dosage: 10 MG DAILY AS NEEDED
     Route: 048
  8. HYDROCORTISONE SOD SUCCINATE [Concomitant]
     Dosage: UNK
  9. LOVASTATIN. [Concomitant]
     Active Substance: LOVASTATIN
     Dosage: 10 MG, DAILY (1 PO DAILY WITH EVENING MEALS)
  10. METFORMIN HCL [Concomitant]
     Active Substance: METFORMIN HYDROCHLORIDE
     Dosage: 850 MG, 2X/DAY (TAKE 2 PO DAILY)
     Route: 048
  11. ACYCLOVIR. [Concomitant]
     Active Substance: ACYCLOVIR
     Dosage: 400 MG, 2X/DAY
     Route: 048
     Dates: start: 20130920
  12. GLIMEPIRIDE. [Concomitant]
     Active Substance: GLIMEPIRIDE
     Dosage: 1 MG, 2X/DAY
     Route: 048
  13. OXYCODONE HYDROCHLORIDE. [Concomitant]
     Active Substance: OXYCODONE HYDROCHLORIDE
     Indication: PAIN
     Dosage: 5 MG, AS NEEDED (TAKE 1 PO Q3-4H PRN)
     Route: 048
     Dates: start: 20131111
  14. PROCHLORPERAZINE MALEATE. [Concomitant]
     Active Substance: PROCHLORPERAZINE MALEATE
     Indication: NAUSEA
     Dosage: 10 MG, AS NEEDED (TAKE 1 PO Q6H PRN)
     Route: 048
     Dates: start: 20130920
  15. OCUVITE [Concomitant]
     Active Substance: VITAMINS
     Dosage: 2 DF, DAILY(VIT C/VIT E/LUTEIN/MIN/OMEGA-3), 150-30-5)
     Route: 048
  16. DEXAMETHASONE. [Concomitant]
     Active Substance: DEXAMETHASONE
     Indication: PLASMA CELL MYELOMA
     Dosage: 4 MG, WEEKLY
     Route: 048
     Dates: start: 20130920
  17. ZOLEDRONIC ACID [Concomitant]
     Active Substance: ZOLEDRONIC ACID
     Dosage: UNK (Q28D)
     Dates: start: 20130920
  18. VITAMIN D [Concomitant]
     Active Substance: CHOLECALCIFEROL
     Dosage: UNK
     Route: 048
  19. KENALOG [Concomitant]
     Active Substance: TRIAMCINOLONE ACETONIDE
     Dosage: 0.1 %, 2X/DAY(2 TIMES A DAY AS NEEDED APPLY PEA SIZED AMOUNT)
     Route: 061
     Dates: start: 20160204
  20. TRAMADOL HCL [Concomitant]
     Active Substance: TRAMADOL HYDROCHLORIDE
     Dosage: 90, AS NEEDED
     Route: 048
  21. CIPROFLOXACIN HCL [Concomitant]
     Active Substance: CIPROFLOXACIN HYDROCHLORIDE
     Dosage: 250 MG, 2X/DAY (TAKE 1 PO BID)
     Route: 048
     Dates: start: 20150608
  22. TRIAMCINOLONE ACETONIDE. [Concomitant]
     Active Substance: TRIAMCINOLONE ACETONIDE
     Dosage: UNK %, 2X/DAY (TAKE 1 APPLICATION)
     Route: 061
  23. CALCIUM [Concomitant]
     Active Substance: CALCIUM
     Dosage: UNK
     Route: 048
  24. LYRICA [Suspect]
     Active Substance: PREGABALIN
     Dosage: 50 MG, 2X/DAY (TAKE 1 PO BID)
     Route: 048
  25. CALCIUM CARBONATE/VITAMIN D3 [Concomitant]
     Dosage: 1 DF, DAILY ((CALCIUM CARBONATE/VITAMIN D3), 600 MG-200)
     Route: 048
  26. JANUVIA [Concomitant]
     Active Substance: SITAGLIPTIN PHOSPHATE
     Dosage: 100 MG, DAILY
     Route: 048
  27. LEVOXYL [Concomitant]
     Active Substance: LEVOTHYROXINE SODIUM
     Dosage: 75 UG, DAILY (TAKE 1 PO DAILY)
     Route: 048
  28. OMEPRAZOLE. [Concomitant]
     Active Substance: OMEPRAZOLE
     Dosage: UNK
     Route: 048
  29. PROAIR HFA [Concomitant]
     Active Substance: ALBUTEROL SULFATE
     Indication: WHEEZING
     Dosage: 90 MCG HFA AEROSOL WITH ADAPTER (GM) TAKE 2 INHALATION(S) BY INHALATION AS NEEDED
  30. VITAMIN D3 [Concomitant]
     Active Substance: CHOLECALCIFEROL
     Dosage: 500 IU, DAILY (TAKE 1 PO DAILY)
  31. FUROSEMIDE. [Concomitant]
     Active Substance: FUROSEMIDE
     Dosage: 20 MG, 1X/DAY
     Route: 048
  32. DIPHENHYDRAMINE HCL [Concomitant]
     Active Substance: DIPHENHYDRAMINE HYDROCHLORIDE
     Dosage: UNK
  33. MEVACOR [Concomitant]
     Active Substance: LOVASTATIN
     Dosage: 10 MG, 1X/DAY(NIGHTLY)
     Route: 048
     Dates: start: 20160204
  34. LYRICA [Suspect]
     Active Substance: PREGABALIN
     Dosage: 100 MG, 3X/DAY
     Route: 048
     Dates: start: 20160204
  35. ASPIRIN (E.C.) [Concomitant]
     Active Substance: ASPIRIN
     Dosage: 325 MG, DAILY (TAKE 1 PO DAILY)
     Route: 048
  36. MOBIC [Concomitant]
     Active Substance: MELOXICAM
     Dosage: 15 MG, DAILY (TAKE 1 PO DAILY)
     Route: 048
     Dates: start: 20160204
  37. ZOVIRAX [Concomitant]
     Active Substance: ACYCLOVIR
     Dosage: 400 MG, 2X/DAY
     Route: 048
     Dates: start: 20160204
  38. LASIX [Concomitant]
     Active Substance: FUROSEMIDE
     Dosage: 20 MG, UNK
     Dates: start: 20160129
  39. GLUCOPHAGE [Concomitant]
     Active Substance: METFORMIN HYDROCHLORIDE
     Dosage: 850 MG, 2X/DAY(WITH MEALS)
     Route: 048
     Dates: start: 20160204
  40. PRILOSEC [Concomitant]
     Active Substance: OMEPRAZOLE MAGNESIUM
     Dosage: 20 MG, DAILY
     Route: 048
     Dates: start: 20160204
  41. ROXICODONE [Concomitant]
     Active Substance: OXYCODONE HYDROCHLORIDE
     Dosage: UNK
  42. TOPAMAX [Concomitant]
     Active Substance: TOPIRAMATE
     Dosage: 200 MG, UNK
     Dates: start: 20151021
  43. CALCIUM 600+VIT D [Concomitant]
     Active Substance: CALCIUM\ERGOCALCIFEROL
     Dosage: 2 DF, DAILY(600 MG- 200 TABLET(S) TAKE 2 PO DAILY)
     Route: 048

REACTIONS (13)
  - Pain [Unknown]
  - Hypoaesthesia [Unknown]
  - Plasma cell myeloma [Unknown]
  - Compression fracture [Unknown]
  - Type 2 diabetes mellitus [Unknown]
  - Anaemia [Unknown]
  - Iron deficiency anaemia [Unknown]
  - Osteoporosis [Unknown]
  - Disease progression [Not Recovered/Not Resolved]
  - Haemorrhage [Unknown]
  - Macular degeneration [Not Recovered/Not Resolved]
  - Chronic kidney disease [Unknown]
  - Dry mouth [Recovering/Resolving]
